FAERS Safety Report 19363359 (Version 8)
Quarter: 2021Q4

REPORT INFORMATION
  Report Type: Other
  Country: CA (occurrence: CA)
  Receive Date: 20210602
  Receipt Date: 20211015
  Transmission Date: 20220303
  Serious: Yes (Other)
  Sender: FDA-Public Use
  Company Number: CA-ROCHE-2841193

PATIENT
  Age: 75 Year
  Sex: Male
  Weight: 102 kg

DRUGS (33)
  1. ACTEMRA [Suspect]
     Active Substance: TOCILIZUMAB
     Indication: Rheumatoid arthritis
     Dosage: 416 MG
     Route: 042
     Dates: start: 20161129, end: 2017
  2. ACTEMRA [Suspect]
     Active Substance: TOCILIZUMAB
     Dosage: NO PIR ON FILE
     Route: 042
     Dates: start: 2017
  3. ASPIRIN [Concomitant]
     Active Substance: ASPIRIN
  4. ATORVASTATIN CALCIUM [Concomitant]
     Active Substance: ATORVASTATIN CALCIUM
     Route: 048
  5. DUTASTERIDE [Concomitant]
     Active Substance: DUTASTERIDE
  6. EZETIMIBE [Concomitant]
     Active Substance: EZETIMIBE
  7. FUCIDIN [Concomitant]
     Active Substance: FUSIDATE SODIUM
  8. FUROSEMIDE [Concomitant]
     Active Substance: FUROSEMIDE
     Route: 048
  9. GLICLAZIDE [Concomitant]
     Active Substance: GLICLAZIDE
     Route: 048
  10. JARDIANCE [Concomitant]
     Active Substance: EMPAGLIFLOZIN
  11. MAGNESIUM [Concomitant]
     Active Substance: MAGNESIUM
  12. MELOXICAM [Concomitant]
     Active Substance: MELOXICAM
     Route: 048
  13. METFORMIN HYDROCHLORIDE [Concomitant]
     Active Substance: METFORMIN HYDROCHLORIDE
     Route: 048
  14. METOPROLOL TARTRATE [Concomitant]
     Active Substance: METOPROLOL TARTRATE
     Route: 048
  15. NITROGLYCERIN TRANSDERMAL DELIVERY SYSTEM [Concomitant]
     Active Substance: NITROGLYCERIN
     Dosage: 0.2 MG/HOUR TRANSDERMAL PATCH, 24 HOURS [12HRS/12HRS OFF]
     Route: 062
  16. PANTOPRAZOLE SODIUM [Concomitant]
     Active Substance: PANTOPRAZOLE SODIUM
  17. PREDNISONE [Concomitant]
     Active Substance: PREDNISONE
     Indication: Polymyalgia rheumatica
     Dosage: TAKE 12.5 MG DAILY FOR 2 WEEKS AND THEN 10 MG DAILY FOR 4 WEEKS
     Route: 048
  18. RABEPRAZOLE SODIUM [Concomitant]
     Active Substance: RABEPRAZOLE SODIUM
     Route: 048
  19. RAMIPRIL [Concomitant]
     Active Substance: RAMIPRIL
     Route: 048
  20. SPIRIVA [Concomitant]
     Active Substance: TIOTROPIUM BROMIDE MONOHYDRATE
  21. SYMBICORT [Concomitant]
     Active Substance: BUDESONIDE\FORMOTEROL FUMARATE DIHYDRATE
     Dosage: 2 PUFF
  22. TAMSULOSIN HYDROCHLORIDE [Concomitant]
     Active Substance: TAMSULOSIN HYDROCHLORIDE
     Route: 048
  23. TIOTROPIUM [Concomitant]
     Active Substance: TIOTROPIUM
  24. XARELTO [Concomitant]
     Active Substance: RIVAROXABAN
  25. ZAROXOLYN [Concomitant]
     Active Substance: METOLAZONE
  26. EZETIMIBE [Concomitant]
     Active Substance: EZETIMIBE
  27. METFORMIN [Concomitant]
     Active Substance: METFORMIN HYDROCHLORIDE
  28. METOPROLOL [Concomitant]
     Active Substance: METOPROLOL
  29. LASIX [Concomitant]
     Active Substance: FUROSEMIDE
     Indication: Fluid retention
     Route: 042
     Dates: start: 202108
  30. TYLENOL WITH CODEINE [Concomitant]
     Active Substance: ACETAMINOPHEN\CODEINE PHOSPHATE
  31. ACETAMINOPHEN\OXYCODONE HYDROCHLORIDE [Concomitant]
     Active Substance: ACETAMINOPHEN\OXYCODONE HYDROCHLORIDE
  32. FOSAVANCE [Concomitant]
     Active Substance: ALENDRONATE SODIUM\CHOLECALCIFEROL
  33. SENOKOT [Concomitant]
     Active Substance: SENNOSIDES

REACTIONS (29)
  - Spinal compression fracture [Recovering/Resolving]
  - Back pain [Not Recovered/Not Resolved]
  - Cellulitis [Recovering/Resolving]
  - Arthralgia [Recovered/Resolved]
  - Joint swelling [Recovered/Resolved]
  - Abdominal discomfort [Unknown]
  - Weight increased [Unknown]
  - Polymyalgia rheumatica [Unknown]
  - Rotator cuff syndrome [Unknown]
  - Osteoarthritis [Unknown]
  - Bursitis [Unknown]
  - Pedal pulse abnormal [Unknown]
  - Skin discolouration [Recovered/Resolved]
  - Arthralgia [Recovering/Resolving]
  - Swelling [Unknown]
  - Oedema peripheral [Unknown]
  - Fluid retention [Unknown]
  - Dyspnoea [Unknown]
  - Weight increased [Unknown]
  - Weight decreased [Unknown]
  - Rales [Not Recovered/Not Resolved]
  - Cystitis [Recovered/Resolved]
  - Pollakiuria [Unknown]
  - Dysuria [Unknown]
  - Dysuria [Unknown]
  - Oxygen saturation decreased [Unknown]
  - Urinary tract infection [Recovered/Resolved]
  - Fatigue [Unknown]
  - Constipation [Unknown]

NARRATIVE: CASE EVENT DATE: 20210101
